FAERS Safety Report 5556923-3 (Version None)
Quarter: 2007Q4

REPORT INFORMATION
  Report Type: 
  Country: None (occurrence: None)
  Receive Date: 20071211
  Receipt Date: 20071211
  Transmission Date: 20080405
  Serious: No
  Sender: FDA-Public Use
  Company Number: None

PATIENT

DRUGS (1)
  1. BETAMETHASONE (COMPOUNDED) [Suspect]

REACTIONS (3)
  - ILL-DEFINED DISORDER [None]
  - INFECTION [None]
  - NEPHROLITHIASIS [None]
